FAERS Safety Report 4835711-7 (Version None)
Quarter: 2005Q4

REPORT INFORMATION
  Report Type: 
  Country: None (occurrence: None)
  Receive Date: 20051123
  Receipt Date: 20051115
  Transmission Date: 20060501
  Serious: Yes (Hospitalization)
  Sender: FDA-Public Use
  Company Number: US-BRISTOL-MYERS SQUIBB COMPANY-13180740

PATIENT
  Age: 3 Decade
  Sex: Male

DRUGS (1)
  1. KENALOG-40 [Suspect]
     Indication: NASAL POLYPS

REACTIONS (1)
  - PSYCHOTIC DISORDER [None]
